FAERS Safety Report 14346977 (Version 4)
Quarter: 2020Q3

REPORT INFORMATION
  Report Type: Spontaneous
  Country: US (occurrence: US)
  Receive Date: 20180103
  Receipt Date: 20200928
  Transmission Date: 20201102
  Serious: Yes (Hospitalization)
  Sender: FDA-Public Use
  Company Number: US-PFIZER INC-2018000824

PATIENT
  Age: 64 Year
  Sex: Female

DRUGS (3)
  1. IBRANCE [Suspect]
     Active Substance: PALBOCICLIB
     Indication: BREAST CANCER STAGE IV
     Dosage: 125 MG, CYCLIC [FOR 21 DAYS ON AND 7 DAYS OFF]
     Route: 048
     Dates: start: 201705, end: 201910
  2. IBRANCE [Suspect]
     Active Substance: PALBOCICLIB
     Dosage: 100 MG, CYCLIC [FOR 21 DAYS ON AND 7 DAYS OFF]
     Route: 048
     Dates: start: 201910
  3. LETROZOLE. [Concomitant]
     Active Substance: LETROZOLE
     Dosage: UNK
     Dates: start: 20160530

REACTIONS (11)
  - Sinusitis [Recovered/Resolved]
  - Diarrhoea [Unknown]
  - Dyspepsia [Unknown]
  - Fatigue [Unknown]
  - Constipation [Unknown]
  - Stomatitis [Recovered/Resolved]
  - Diverticulitis [Unknown]
  - Lacrimation increased [Not Recovered/Not Resolved]
  - Appendicitis [Unknown]
  - Blood count abnormal [Recovered/Resolved]
  - Alopecia [Unknown]

NARRATIVE: CASE EVENT DATE: 201910
